FAERS Safety Report 6647589-X (Version None)
Quarter: 2010Q1

REPORT INFORMATION
  Report Type: 
  Country: None (occurrence: None)
  Receive Date: 20100323
  Receipt Date: 20100312
  Transmission Date: 20100710
  Serious: Yes (Hospitalization)
  Sender: FDA-Public Use
  Company Number: JP-ABBOTT-10P-087-0627686-00

PATIENT
  Sex: Male

DRUGS (5)
  1. NORVIR [Suspect]
     Indication: HIV INFECTION
     Route: 048
     Dates: start: 20081010, end: 20091113
  2. NORVIR [Suspect]
  3. EPZICOM [Suspect]
     Indication: HIV INFECTION
     Route: 048
     Dates: start: 20081010
  4. LEXIVA [Suspect]
     Indication: HIV INFECTION
     Route: 048
     Dates: start: 20081010, end: 20091113
  5. LEXIVA [Suspect]
     Route: 048
     Dates: start: 20091114

REACTIONS (3)
  - INTRACARDIAC THROMBUS [None]
  - MYOCARDIAL INFARCTION [None]
  - PNEUMONIA [None]
